FAERS Safety Report 7064520-6 (Version None)
Quarter: 2010Q4

REPORT INFORMATION
  Report Type: 
  Country: None (occurrence: None)
  Receive Date: 20101022
  Receipt Date: 20101022
  Transmission Date: 20110411
  Serious: Yes (Other)
  Sender: FDA-Public Use
  Company Number: None

PATIENT
  Sex: Female

DRUGS (2)
  1. OXYCODONE 30MGS BID [Suspect]
     Indication: MULTIPLE SCLEROSIS
     Dosage: 30MGS BID ORAL
     Route: 048
     Dates: start: 20100808
  2. OXYCODONE 30MGS BID [Suspect]
     Indication: NEUROPATHY PERIPHERAL
     Dosage: 30MGS BID ORAL
     Route: 048
     Dates: start: 20100808

REACTIONS (2)
  - DRUG INEFFECTIVE [None]
  - PRODUCT FORMULATION ISSUE [None]
